FAERS Safety Report 16844524 (Version 1)
Quarter: 2019Q4

REPORT INFORMATION
  Report Type: Spontaneous
  Country: US (occurrence: US)
  Receive Date: 20190923
  Receipt Date: 20190923
  Transmission Date: 20200122
  Serious: No
  Sender: FDA-Public Use
  Company Number: None

PATIENT
  Age: 60 Year
  Sex: Male
  Weight: 94.5 kg

DRUGS (9)
  1. SILMARYN [Concomitant]
  2. MULTIVITAMIN/MINERAL [Concomitant]
  3. TUMERIC [Concomitant]
     Active Substance: HERBALS\TURMERIC
  4. VORICONAZOLE. [Suspect]
     Active Substance: VORICONAZOLE
     Indication: FUNGAL INFECTION
     Route: 048
     Dates: start: 20180702, end: 20180709
  5. VITAMIN D [Concomitant]
     Active Substance: VITAMIN D NOS
  6. EPA/DHA [Concomitant]
  7. CALCIUM/MAGNESIUM [Concomitant]
     Active Substance: CALCIUM\MAGNESIUM
  8. UBIQUINOL [Concomitant]
     Active Substance: UBIQUINOL
  9. K2 COMPLEX [Concomitant]

REACTIONS (4)
  - Abdominal pain [None]
  - Visual impairment [None]
  - Altered visual depth perception [None]
  - Therapy cessation [None]

NARRATIVE: CASE EVENT DATE: 20180709
